FAERS Safety Report 9183488 (Version 1)
Quarter: 2013Q1

REPORT INFORMATION
  Report Type: Spontaneous
  Country: US (occurrence: US)
  Receive Date: 20130322
  Receipt Date: 20130322
  Transmission Date: 20140127
  Serious: No
  Sender: FDA-Public Use
  Company Number: US-BRISTOL-MYERS SQUIBB COMPANY-16430399

PATIENT
  Age: 65 Year
  Sex: Male
  Weight: 75 kg

DRUGS (1)
  1. ERBITUX [Suspect]
     Dosage: NO OF DOSES:2,2ND DOSE ON 29FEB12
     Dates: start: 20120215

REACTIONS (4)
  - Pruritus [Unknown]
  - Acne [Unknown]
  - Erythema [Unknown]
  - Alopecia [Unknown]
